FAERS Safety Report 5736955-2 (Version None)
Quarter: 2008Q2

REPORT INFORMATION
  Report Type: 
  Country: None (occurrence: None)
  Receive Date: 20080513
  Receipt Date: 20080513
  Transmission Date: 20081010
  Serious: Yes (Life-Threatening)
  Sender: FDA-Public Use
  Company Number: None

PATIENT
  Age: 30 Year
  Sex: Female
  Weight: 79.3795 kg

DRUGS (2)
  1. NEURONTIN [Suspect]
     Indication: DEPRESSION
     Dosage: 300 MG 3X DAILY PO
     Route: 048
     Dates: start: 20080401, end: 20080512
  2. NEURONTIN [Suspect]
     Indication: POST-TRAUMATIC STRESS DISORDER
     Dosage: 300 MG 3X DAILY PO
     Route: 048
     Dates: start: 20080401, end: 20080512

REACTIONS (2)
  - MEDICATION ERROR [None]
  - OFF LABEL USE [None]
